FAERS Safety Report 5505407-7 (Version None)
Quarter: 2007Q4

REPORT INFORMATION
  Report Type: 
  Country: None (occurrence: None)
  Receive Date: 20071102
  Receipt Date: 20061031
  Transmission Date: 20080405
  Serious: Yes (Hospitalization)
  Sender: FDA-Public Use
  Company Number: SE-MERCK-0611SWE00003M

PATIENT
  Sex: Female

DRUGS (3)
  1. CLINORIL [Suspect]
     Indication: NEPHROLITHIASIS
     Route: 048
  2. HYDROMORPHONE HYDROCHLORIDE [Concomitant]
     Indication: NEPHROLITHIASIS
     Route: 065
  3. DICLOFENAC SODIUM [Concomitant]
     Indication: NEPHROLITHIASIS
     Route: 054

REACTIONS (3)
  - COMPLICATION OF DELIVERY [None]
  - DRUG EXPOSURE DURING PREGNANCY [None]
  - PREMATURE BABY [None]
